FAERS Safety Report 23686651 (Version 2)
Quarter: 2024Q2

REPORT INFORMATION
  Report Type: Spontaneous
  Country: JP (occurrence: JP)
  Receive Date: 20240329
  Receipt Date: 20240412
  Transmission Date: 20240716
  Serious: Yes (Other)
  Sender: FDA-Public Use
  Company Number: JP-TAKEDA-2024TJP004468

PATIENT

DRUGS (2)
  1. ZEJULA [Suspect]
     Active Substance: NIRAPARIB
     Indication: Ovarian cancer
     Dosage: 200 MILLIGRAM
     Route: 048
     Dates: start: 20240308, end: 20240322
  2. ZEJULA [Suspect]
     Active Substance: NIRAPARIB
     Dosage: UNK
     Route: 048

REACTIONS (3)
  - Neuropathy peripheral [Recovering/Resolving]
  - Pyrexia [Recovering/Resolving]
  - Blood pressure increased [Not Recovered/Not Resolved]

NARRATIVE: CASE EVENT DATE: 20240402
